FAERS Safety Report 16661075 (Version 2)
Quarter: 2019Q4

REPORT INFORMATION
  Report Type: Spontaneous
  Country: US (occurrence: US)
  Receive Date: 20190802
  Receipt Date: 20191025
  Transmission Date: 20200122
  Serious: No
  Sender: FDA-Public Use
  Company Number: US-GLAXOSMITHKLINE-US2019140124

PATIENT
  Sex: Male

DRUGS (1)
  1. NICODERM CQ [Suspect]
     Active Substance: NICOTINE
     Indication: SMOKING CESSATION THERAPY
     Dosage: 21 MG, UNK
     Route: 062
     Dates: end: 201907

REACTIONS (7)
  - Application site reaction [Unknown]
  - Application site urticaria [Unknown]
  - Application site scab [Unknown]
  - Application site irritation [Unknown]
  - Product use issue [Unknown]
  - Incorrect product administration duration [Unknown]
  - Product complaint [Unknown]

NARRATIVE: CASE EVENT DATE: 20190730
